FAERS Safety Report 10906234 (Version 2)
Quarter: 2015Q1

REPORT INFORMATION
  Report Type: Report from Study
  Country: US (occurrence: US)
  Receive Date: 20150311
  Receipt Date: 20150313
  Transmission Date: 20150721
  Serious: Yes (Other)
  Sender: FDA-Public Use
  Company Number: US-GILEAD-2015-0140558

PATIENT
  Age: 59 Year
  Sex: Female

DRUGS (1)
  1. LEDIPASVIR/SOFOSBUVIR [Suspect]
     Active Substance: LEDIPASVIR\SOFOSBUVIR
     Indication: CHRONIC HEPATITIS C
     Dosage: 1 DF, UNK
     Route: 048

REACTIONS (8)
  - Red blood cell count decreased [Unknown]
  - Fatigue [Unknown]
  - Visual impairment [Unknown]
  - Cerebrovascular accident [Unknown]
  - Headache [Unknown]
  - VIIth nerve paralysis [Unknown]
  - Blood pressure increased [Unknown]
  - Ageusia [Unknown]

NARRATIVE: CASE EVENT DATE: 201502
